FAERS Safety Report 7743465-X (Version None)
Quarter: 2011Q3

REPORT INFORMATION
  Report Type: 
  Country: None (occurrence: None)
  Receive Date: 20110912
  Receipt Date: 20110902
  Transmission Date: 20111222
  Serious: Yes (Other)
  Sender: FDA-Public Use
  Company Number: AU-NAPPMUNDI-USA_2008_0033508

PATIENT
  Sex: Male
  Weight: 80 kg

DRUGS (11)
  1. KARVEA [Concomitant]
     Dosage: UNK
     Dates: start: 20040101
  2. BUPRENORPHINE [Suspect]
     Dosage: BTDS 10MCG/HR VS PLACEBO
     Route: 062
     Dates: start: 20080613, end: 20080620
  3. ACETYLSALICYLIC ACID SRT [Concomitant]
     Dosage: UNK
     Dates: start: 20030101
  4. PRAVASTATIN SODIUM [Concomitant]
     Dosage: UNK
     Dates: start: 20040101
  5. NEXIUM                             /01479303/ [Concomitant]
     Dosage: UNK
     Dates: start: 20060101
  6. BUPRENORPHINE [Suspect]
     Dosage: BTDS 30MCG/HR VS PLACEBO
     Route: 062
     Dates: start: 20080627, end: 20080727
  7. BUPRENORPHINE [Suspect]
     Indication: POST HERPETIC NEURALGIA
     Dosage: 5 MCG, Q1H
     Route: 062
     Dates: start: 20080606
  8. BUPRENORPHINE [Suspect]
     Dosage: BTDS 20MCG/HR VS PLACEBO
     Route: 062
     Dates: start: 20080620, end: 20080627
  9. SPIRIVA [Concomitant]
     Dosage: UNK
     Dates: start: 20070601
  10. PULMICORT [Concomitant]
     Dosage: UNK
     Dates: start: 20070101
  11. VASOCARDOL [Concomitant]
     Dosage: UNK
     Dates: start: 19980101

REACTIONS (2)
  - LUNG NEOPLASM [None]
  - PRESYNCOPE [None]
